FAERS Safety Report 20737258 (Version 3)
Quarter: 2024Q1

REPORT INFORMATION
  Report Type: Spontaneous
  Country: FR (occurrence: None)
  Receive Date: 20220421
  Receipt Date: 20240202
  Transmission Date: 20240410
  Serious: Yes (Death, Other)
  Sender: FDA-Public Use
  Company Number: 2022A150080

PATIENT
  Age: 65 Year
  Sex: Male
  Weight: 71 kg

DRUGS (11)
  1. ESOMEPRAZOLE [Suspect]
     Active Substance: ESOMEPRAZOLE
     Indication: Prophylaxis against gastrointestinal ulcer
     Dosage: 20 MILLIGRAM, QD
     Route: 048
  2. CANDESARTAN CILEXETIL [Suspect]
     Active Substance: CANDESARTAN CILEXETIL
     Indication: Hypertension
     Dosage: 8 MILLIGRAM, QD
     Route: 048
  3. METOPROLOL TARTRATE [Suspect]
     Active Substance: METOPROLOL TARTRATE
     Indication: Hypertension
     Dosage: 100 MG, QD
     Route: 048
  4. CALCIUM CHLORIDE [Suspect]
     Active Substance: CALCIUM CHLORIDE
     Indication: Mineral supplementation
     Dosage: 500 MILLIGRAM, QD
     Route: 048
  5. NULOJIX [Suspect]
     Active Substance: BELATACEPT
     Indication: Prophylaxis against transplant rejection
     Dosage: 360 MILLIGRAM, PER MONTH
     Route: 041
     Dates: start: 201701
  6. PREDNISONE [Suspect]
     Active Substance: PREDNISONE
     Indication: Prophylaxis against transplant rejection
     Dosage: 10 MILLIGRAM, QD
     Route: 048
  7. URAPIDIL [Suspect]
     Active Substance: URAPIDIL
     Indication: Hypertension
     Dosage: 180 MILLIGRAM, QD
     Route: 048
  8. SOTROVIMAB [Suspect]
     Active Substance: SOTROVIMAB
     Indication: COVID-19
     Dosage: 500 MILLIGRAM, QD
     Route: 041
     Dates: start: 20220404, end: 20220404
  9. LERCANIDIPINE [Suspect]
     Active Substance: LERCANIDIPINE
     Indication: Hypertension
     Dosage: 20 MILLIGRAM, QD
     Route: 048
  10. KARDEGIC [Suspect]
     Active Substance: ASPIRIN DL-LYSINE
     Indication: Cardiomyopathy
     Dosage: 1 DOSAGE FORM, QD
     Route: 048
  11. CELLCEPT [Suspect]
     Active Substance: MYCOPHENOLATE MOFETIL
     Route: 065

REACTIONS (1)
  - Sudden death [Fatal]

NARRATIVE: CASE EVENT DATE: 20220407
